FAERS Safety Report 13373314 (Version 2)
Quarter: 2017Q2

REPORT INFORMATION
  Report Type: Spontaneous
  Country: US (occurrence: US)
  Receive Date: 20170327
  Receipt Date: 20170419
  Transmission Date: 20170830
  Serious: Yes (Life-Threatening, Hospitalization, Other)
  Sender: FDA-Public Use
  Company Number: US-JNJFOC-20170326791

PATIENT
  Age: 49 Year
  Sex: Male

DRUGS (1)
  1. LEVAQUIN [Suspect]
     Active Substance: LEVOFLOXACIN
     Indication: PRODUCT USED FOR UNKNOWN INDICATION
     Route: 065

REACTIONS (4)
  - Aortic dissection [Recovering/Resolving]
  - Pneumothorax [Recovering/Resolving]
  - Aortic aneurysm [Unknown]
  - Cardiac tamponade [Recovering/Resolving]

NARRATIVE: CASE EVENT DATE: 201512
